FAERS Safety Report 25697772 (Version 2)
Quarter: 2025Q3

REPORT INFORMATION
  Report Type: Spontaneous
  Country: US (occurrence: US)
  Receive Date: 20250819
  Receipt Date: 20250901
  Transmission Date: 20251021
  Serious: No
  Sender: ELI LILLY AND COMPANY
  Company Number: US-ELI_LILLY_AND_COMPANY-US202508012777

PATIENT
  Age: 20 Year
  Sex: Female

DRUGS (1)
  1. OLUMIANT [Suspect]
     Active Substance: BARICITINIB
     Indication: Alopecia areata
     Route: 048
     Dates: start: 20241122

REACTIONS (6)
  - Heavy menstrual bleeding [Unknown]
  - Pain [Unknown]
  - Drug hypersensitivity [Recovering/Resolving]
  - Dermatitis [Recovering/Resolving]
  - Dermatitis contact [Unknown]
  - Rash [Not Recovered/Not Resolved]
